FAERS Safety Report 14190868 (Version 1)
Quarter: 2017Q4

REPORT INFORMATION
  Report Type: Spontaneous
  Country: US (occurrence: None)
  Receive Date: 20171114
  Receipt Date: 20171114
  Transmission Date: 20180321
  Serious: Yes (Hospitalization)
  Sender: FDA-Public Use
  Company Number: None

PATIENT
  Age: 49 Year
  Sex: Female
  Weight: 60.8 kg

DRUGS (10)
  1. HARVONI [Suspect]
     Active Substance: LEDIPASVIR\SOFOSBUVIR
     Indication: HEPATITIS C
     Dosage: 90-400 QD ORAL
     Route: 048
     Dates: start: 20150909, end: 20151227
  2. INSULIN DETEMIR [Concomitant]
     Active Substance: INSULIN DETEMIR
  3. MAGNESIUM CHLORIDE. [Concomitant]
     Active Substance: MAGNESIUM CHLORIDE
  4. MULTIVITAMIN [Concomitant]
     Active Substance: VITAMINS
  5. INSULIN REGULAR [Concomitant]
     Active Substance: INSULIN NOS
  6. NADOLOL. [Concomitant]
     Active Substance: NADOLOL
  7. SPIRONOLACTONE. [Concomitant]
     Active Substance: SPIRONOLACTONE
  8. OMEPRAZOLE. [Concomitant]
     Active Substance: OMEPRAZOLE
  9. FUROSEMIDE. [Concomitant]
     Active Substance: FUROSEMIDE
  10. LACTULOSE. [Concomitant]
     Active Substance: LACTULOSE

REACTIONS (5)
  - Confusional state [None]
  - Lethargy [None]
  - Frequent bowel movements [None]
  - Incontinence [None]
  - Hypophagia [None]

NARRATIVE: CASE EVENT DATE: 20151216
